FAERS Safety Report 7999290-8 (Version None)
Quarter: 2011Q4

REPORT INFORMATION
  Report Type: 
  Country: None (occurrence: None)
  Receive Date: 20111221
  Receipt Date: 20111215
  Transmission Date: 20120403
  Serious: Yes (Other)
  Sender: FDA-Public Use
  Company Number: PHHY2011GB098646

PATIENT
  Age: 52 Year
  Sex: Male
  Weight: 124 kg

DRUGS (2)
  1. DICLOFENAC SODIUM [Suspect]
     Indication: PAIN
     Dosage: 50 MG, TID
     Dates: start: 20111101
  2. PIROXICAM [Concomitant]
     Dates: start: 20110929, end: 20111027

REACTIONS (2)
  - ANTISOCIAL BEHAVIOUR [None]
  - DISINHIBITION [None]
